FAERS Safety Report 7829143-7 (Version None)
Quarter: 2011Q4

REPORT INFORMATION
  Report Type: 
  Country: None (occurrence: None)
  Receive Date: 20111020
  Receipt Date: 20111011
  Transmission Date: 20120403
  Serious: Yes (Hospitalization)
  Sender: FDA-Public Use
  Company Number: PHHY2011MX90613

PATIENT
  Sex: Female

DRUGS (4)
  1. DIOVAN HCT [Suspect]
     Indication: HYPERTENSION
     Dosage: 2 DF (160/12.5 MG), DAILY
     Dates: start: 20070609
  2. HYDROCHLOROTHIAZIDE [Suspect]
  3. VALSARTAN [Suspect]
     Dosage: 4 DF, UNK
  4. FELODIPINE [Concomitant]
     Dosage: 1 DF, DAILY

REACTIONS (1)
  - ARTHROPATHY [None]
